FAERS Safety Report 7675844-3 (Version None)
Quarter: 2011Q3

REPORT INFORMATION
  Report Type: 
  Country: None (occurrence: None)
  Receive Date: 20110810
  Receipt Date: 20110805
  Transmission Date: 20111222
  Serious: Yes (Death, Other)
  Sender: FDA-Public Use
  Company Number: MX-BRISTOL-MYERS SQUIBB COMPANY-15952401

PATIENT
  Age: 70 Year
  Sex: Male

DRUGS (3)
  1. APROVEL TABS 150 MG [Suspect]
     Indication: HYPERTENSION
     Dosage: 1 DF = 1 TABS
     Route: 048
     Dates: start: 20000101, end: 20110501
  2. IRBESARTAN AND HYDROCHLOROTHIAZIDE [Suspect]
     Indication: HYPERTENSION
     Dosage: 1 DF=1TAB.
     Route: 048
     Dates: start: 20000101, end: 20110501
  3. PLAVIX [Suspect]
     Indication: THROMBOSIS PROPHYLAXIS
     Dosage: FREQUENCY : DOSE INCREASED FROM 75MGPER 24HRS-2003 TO FEB11: 75MG PER 12HRS-FEB11-19JUL11
     Route: 048
     Dates: start: 20030101, end: 20110719

REACTIONS (5)
  - LYMPHOEDEMA [None]
  - THROMBOSIS [None]
  - CEREBROVASCULAR ACCIDENT [None]
  - PROSTATE CANCER [None]
  - HYPOTENSION [None]
